FAERS Safety Report 14936722 (Version 1)
Quarter: 2018Q2

REPORT INFORMATION
  Report Type: Spontaneous
  Country: JP (occurrence: JP)
  Receive Date: 20180525
  Receipt Date: 20180525
  Transmission Date: 20180711
  Serious: No
  Sender: FDA-Public Use
  Company Number: JP-LUPIN PHARMACEUTICALS INC.-2018-01154

PATIENT
  Age: 8 Decade
  Sex: Female

DRUGS (1)
  1. DONEPEZIL HCL 5MG OD TABLET [Suspect]
     Active Substance: DONEPEZIL HYDROCHLORIDE
     Indication: DEMENTIA
     Dosage: 1 DF, QD
     Route: 048
     Dates: start: 20171106, end: 20171114

REACTIONS (1)
  - Eczema [Recovered/Resolved]

NARRATIVE: CASE EVENT DATE: 20171106
